FAERS Safety Report 6296344-1 (Version None)
Quarter: 2009Q3

REPORT INFORMATION
  Report Type: 
  Country: None (occurrence: None)
  Receive Date: 20090804
  Receipt Date: 20090724
  Transmission Date: 20100115
  Serious: Yes (Hospitalization)
  Sender: FDA-Public Use
  Company Number: PHHY2008DE19186

PATIENT
  Sex: Female
  Weight: 24 kg

DRUGS (1)
  1. ELIDEL [Suspect]
     Indication: VITILIGO
     Dosage: UNK
     Route: 061
     Dates: start: 20080815, end: 20080820

REACTIONS (11)
  - ACCIDENTAL EXPOSURE [None]
  - ATAXIA [None]
  - BALANCE DISORDER [None]
  - DIPLOPIA [None]
  - DIZZINESS [None]
  - FACIAL PARESIS [None]
  - GAIT DISTURBANCE [None]
  - HEADACHE [None]
  - NAUSEA [None]
  - NYSTAGMUS [None]
  - VERTIGO [None]
